FAERS Safety Report 6032353-5 (Version None)
Quarter: 2008Q4

REPORT INFORMATION
  Report Type: 
  Country: None (occurrence: None)
  Receive Date: 20081222
  Receipt Date: 20081104
  Transmission Date: 20090506
  Serious: No
  Sender: FDA-Public Use
  Company Number: US-WYE-H06668108

PATIENT
  Age: 49 Year
  Sex: Male
  Weight: 95.34 kg

DRUGS (6)
  1. PRISTIQ [Suspect]
     Indication: ANXIETY
     Dosage: 50 MG 1X PER 1 DAY, ORAL
     Route: 048
     Dates: start: 20081103, end: 20081103
  2. ALPRAZOLAM [Concomitant]
  3. TYLENOL PM (DIPHENHYDRAMINE/PARACETAMOL) [Concomitant]
  4. LISINOPRIL [Concomitant]
  5. CRESTOR [Concomitant]
  6. ASPIRIN [Concomitant]

REACTIONS (7)
  - ANOREXIA [None]
  - COLD SWEAT [None]
  - DIARRHOEA [None]
  - DRY MOUTH [None]
  - HEADACHE [None]
  - MIDDLE INSOMNIA [None]
  - SOMNOLENCE [None]
